FAERS Safety Report 19165943 (Version 2)
Quarter: 2021Q2

REPORT INFORMATION
  Report Type: Other
  Country: CA (occurrence: CA)
  Receive Date: 20210422
  Receipt Date: 20210528
  Transmission Date: 20210717
  Serious: Yes (Hospitalization, Other)
  Sender: FDA-Public Use
  Company Number: CA-CELLTRION INC.-2021CA005221

PATIENT

DRUGS (20)
  1. PANTOPRAZOLE [Concomitant]
     Active Substance: PANTOPRAZOLE
     Route: 065
  2. SALBUTAMOL SULFATE [Concomitant]
     Active Substance: ALBUTEROL SULFATE
  3. HYDROXYCHLOROQUINE SULFATE. [Suspect]
     Active Substance: HYDROXYCHLOROQUINE SULFATE
     Indication: PRODUCT USED FOR UNKNOWN INDICATION
     Route: 065
  4. ACETAMINOPHEN. [Concomitant]
     Active Substance: ACETAMINOPHEN
     Indication: PREMEDICATION
     Dosage: 650 MILLIGRAM
     Route: 048
  5. PREDNISONE. [Concomitant]
     Active Substance: PREDNISONE
  6. ACETAMINOPHEN. [Concomitant]
     Active Substance: ACETAMINOPHEN
     Dosage: 1 EVERY 4 HOURS
     Route: 065
  7. METHOTREXATE. [Concomitant]
     Active Substance: METHOTREXATE
     Route: 048
  8. METHYLPREDNISOLONE. [Concomitant]
     Active Substance: METHYLPREDNISOLONE
     Indication: PREMEDICATION
     Dosage: 100 MILLIGRAM
     Route: 042
  9. NAPROXEN SODIUM. [Concomitant]
     Active Substance: NAPROXEN SODIUM
  10. ROSUVASTATIN CALCIUM. [Concomitant]
     Active Substance: ROSUVASTATIN CALCIUM
     Dosage: 20 MG
     Route: 048
  11. ESOMEPRAZOLE MAGNESIUM TRIHYDRATE/NAPROXEN [Concomitant]
     Active Substance: ESOMEPRAZOLE MAGNESIUM\NAPROXEN
     Dosage: UNK
  12. FLUTICASONE PROPIONATE. [Concomitant]
     Active Substance: FLUTICASONE PROPIONATE
  13. FOLIC ACID. [Concomitant]
     Active Substance: FOLIC ACID
  14. HYDROCHLOROTHIAZIDE. [Concomitant]
     Active Substance: HYDROCHLOROTHIAZIDE
  15. RITUXIMAB (UNKNOWN) [Suspect]
     Active Substance: RITUXIMAB
     Indication: RHEUMATOID ARTHRITIS
     Dosage: 1000 MG, 1 EVERY 15 DAYS
     Route: 042
  16. METHYLPREDNISOLONE SODIUM SUCCINATE. [Suspect]
     Active Substance: METHYLPREDNISOLONE SODIUM SUCCINATE
     Indication: PNEUMONIA
     Dosage: UNK
     Route: 042
  17. ACETAMINOPHEN. [Concomitant]
     Active Substance: ACETAMINOPHEN
     Indication: PREMEDICATION
     Dosage: 1000 MILLIGRAM
     Route: 048
  18. CICLESONIDE [Concomitant]
     Active Substance: CICLESONIDE
     Dosage: 2 EVERY 1 DAY
     Route: 065
  19. DIPHENHYDRAMINE HYDROCHLORIDE. [Concomitant]
     Active Substance: DIPHENHYDRAMINE HYDROCHLORIDE
     Indication: PREMEDICATION
     Dosage: 50 MILLIGRAM
     Route: 048
  20. NIFEDIPINE. [Concomitant]
     Active Substance: NIFEDIPINE

REACTIONS (30)
  - Neutrophil count increased [Recovered/Resolved]
  - Red cell distribution width increased [Recovered/Resolved]
  - Pneumonia [Recovered/Resolved]
  - Aortic arteriosclerosis [Recovered/Resolved]
  - Diaphragm muscle weakness [Recovered/Resolved]
  - Hyperglycaemia [Recovered/Resolved]
  - Increased bronchial secretion [Recovered/Resolved]
  - Mean cell haemoglobin decreased [Recovered/Resolved]
  - Back pain [Recovered/Resolved]
  - Antinuclear antibody increased [Recovered/Resolved]
  - White blood cell count increased [Recovered/Resolved]
  - Mycobacterium avium complex infection [Recovered/Resolved]
  - Arthralgia [Recovered/Resolved]
  - Pain [Recovered/Resolved]
  - Drug ineffective [Recovered/Resolved]
  - Off label use [Unknown]
  - Haematocrit decreased [Recovered/Resolved]
  - Haemoglobin decreased [Recovered/Resolved]
  - Interstitial lung disease [Recovered/Resolved]
  - Tension [Recovered/Resolved]
  - Arteriosclerosis coronary artery [Recovered/Resolved]
  - C-reactive protein increased [Recovered/Resolved]
  - Upper-airway cough syndrome [Recovered/Resolved]
  - Anti-cyclic citrullinated peptide antibody [Recovered/Resolved]
  - Basophil count increased [Recovered/Resolved]
  - Eosinophil count increased [Recovered/Resolved]
  - Platelet count increased [Recovered/Resolved]
  - Creatinine urine increased [Recovered/Resolved]
  - Rheumatoid factor increased [Recovered/Resolved]
  - Chills [Recovered/Resolved]
